FAERS Safety Report 20034741 (Version 1)
Quarter: 2021Q4

REPORT INFORMATION
  Report Type: Spontaneous
  Country: CN (occurrence: CN)
  Receive Date: 20211104
  Receipt Date: 20211104
  Transmission Date: 20220303
  Serious: Yes (Hospitalization, Other)
  Sender: FDA-Public Use
  Company Number: CN-PFIZER INC-202101450524

PATIENT
  Age: 2 Year
  Sex: Female
  Weight: 11 kg

DRUGS (5)
  1. CYTARABINE [Suspect]
     Active Substance: CYTARABINE
     Indication: Acute leukaemia
     Dosage: 0.024 G, 2X/DAY
     Route: 058
     Dates: start: 20210610, end: 20210616
  2. MERCAPTOPURINE [Suspect]
     Active Substance: MERCAPTOPURINE
     Indication: Acute lymphocytic leukaemia
     Dosage: 19 MG, 1X/DAY
     Route: 048
     Dates: start: 20210610, end: 20210616
  3. CYCLOPHOSPHAMIDE [Suspect]
     Active Substance: CYCLOPHOSPHAMIDE
     Indication: Acute leukaemia
     Dosage: 0.478 G, 1X/DAY
     Route: 041
     Dates: start: 20210610, end: 20210610
  4. SODIUM CHLORIDE [Concomitant]
     Active Substance: SODIUM CHLORIDE
     Indication: Vehicle solution use
     Dosage: 100 ML, 1X/DAY
     Route: 042
     Dates: start: 20210610, end: 20210610
  5. SODIUM CHLORIDE [Concomitant]
     Active Substance: SODIUM CHLORIDE
     Indication: Vehicle solution use
     Dosage: 1.5 G, 1X/DAY
     Route: 042
     Dates: start: 20210610, end: 20210612

REACTIONS (6)
  - Myelosuppression [Recovering/Resolving]
  - Pyrexia [Recovered/Resolved]
  - Temperature intolerance [Unknown]
  - Chills [Unknown]
  - Heart rate increased [Unknown]
  - Respiratory rate increased [Unknown]

NARRATIVE: CASE EVENT DATE: 20210614
